FAERS Safety Report 12469336 (Version 2)
Quarter: 2016Q3

REPORT INFORMATION
  Report Type: Spontaneous
  Country: TR (occurrence: TR)
  Receive Date: 20160615
  Receipt Date: 20160705
  Transmission Date: 20161109
  Serious: Yes (Hospitalization, Other)
  Sender: FDA-Public Use
  Company Number: TR-SA-2016SA109844

PATIENT
  Age: 42 Year
  Sex: Male

DRUGS (4)
  1. ACETYLSALICYLIC ACID [Suspect]
     Active Substance: ASPIRIN
     Route: 065
  2. CLOPIDOGREL BISULFATE. [Suspect]
     Active Substance: CLOPIDOGREL BISULFATE
     Route: 065
  3. HEPARIN [Suspect]
     Active Substance: HEPARIN SODIUM
     Route: 065
  4. TIROFIBAN [Suspect]
     Active Substance: TIROFIBAN
     Dosage: INFUSION
     Route: 065

REACTIONS (7)
  - Haemoglobin decreased [Recovering/Resolving]
  - Respiratory tract haemorrhage [Recovered/Resolved]
  - Pulmonary alveolar haemorrhage [Recovered/Resolved]
  - Dyspnoea [Recovered/Resolved]
  - PO2 decreased [Recovered/Resolved]
  - Haemoptysis [Recovered/Resolved]
  - Chest X-ray abnormal [Recovered/Resolved]
